FAERS Safety Report 14860235 (Version 1)
Quarter: 2018Q2

REPORT INFORMATION
  Report Type: Spontaneous
  Country: IN (occurrence: IN)
  Receive Date: 20180508
  Receipt Date: 20180508
  Transmission Date: 20180711
  Serious: Yes (Other)
  Sender: FDA-Public Use
  Company Number: IN-RICON PHARMA, LLC-RIC201804-000387

PATIENT
  Age: 65 Year
  Sex: Male

DRUGS (4)
  1. LIDOCAINE. [Suspect]
     Active Substance: LIDOCAINE
     Indication: ANAESTHESIA
     Route: 061
  2. LIDOCAINE. [Suspect]
     Active Substance: LIDOCAINE
  3. LIDOCAINE. [Suspect]
     Active Substance: LIDOCAINE
     Dosage: 5 SPRAYS
  4. LIDOCAINE. [Suspect]
     Active Substance: LIDOCAINE

REACTIONS (4)
  - Circulatory collapse [Recovered/Resolved]
  - Loss of consciousness [Recovered/Resolved]
  - Cardiotoxicity [Recovered/Resolved]
  - Ventricular tachycardia [Recovered/Resolved]
